FAERS Safety Report 26158732 (Version 1)
Quarter: 2025Q4

REPORT INFORMATION
  Report Type: Spontaneous
  Country: US (occurrence: None)
  Receive Date: 20251215
  Receipt Date: 20251215
  Transmission Date: 20260118
  Serious: No
  Sender: ALKERMES
  Company Number: US-ALKERMES INC.-ALK-2025-003273

PATIENT
  Sex: Male

DRUGS (1)
  1. LYBALVI [Suspect]
     Active Substance: OLANZAPINE\SAMIDORPHAN L-MALATE
     Indication: Schizophrenia
     Dosage: 20 MILLIGRAM/10 MILLIGRAM, QD
     Route: 061

REACTIONS (3)
  - Insomnia [Recovering/Resolving]
  - Condition aggravated [Recovering/Resolving]
  - Coronavirus infection [Recovering/Resolving]
